FAERS Safety Report 15091865 (Version 1)
Quarter: 2018Q2

REPORT INFORMATION
  Report Type: Spontaneous
  Country: US (occurrence: US)
  Receive Date: 20180608
  Receipt Date: 20180608
  Transmission Date: 20180711
  Serious: Yes (Hospitalization)
  Sender: FDA-Public Use
  Company Number: None

PATIENT
  Age: 74 Year
  Sex: Male

DRUGS (1)
  1. CEFTRIAXONE. [Suspect]
     Active Substance: CEFTRIAXONE
     Indication: OSTEOMYELITIS
     Route: 042
     Dates: start: 20180328, end: 20180413

REACTIONS (3)
  - Hepatic enzyme increased [None]
  - Aspartate aminotransferase decreased [None]
  - Alanine aminotransferase increased [None]

NARRATIVE: CASE EVENT DATE: 20180413
